FAERS Safety Report 6209283-9 (Version None)
Quarter: 2009Q2

REPORT INFORMATION
  Report Type: 
  Country: None (occurrence: None)
  Receive Date: 20090529
  Receipt Date: 20090521
  Transmission Date: 20091009
  Serious: Yes (Hospitalization)
  Sender: FDA-Public Use
  Company Number: AR-AMGEN-US348776

PATIENT
  Sex: Male
  Weight: 68 kg

DRUGS (5)
  1. ENBREL [Suspect]
     Indication: RHEUMATOID ARTHRITIS
     Route: 058
     Dates: start: 20080711, end: 20090201
  2. MOBIC [Concomitant]
     Indication: PAIN
     Route: 048
  3. MOBIC [Concomitant]
     Indication: INFLAMMATION
  4. DEFLAZACORT [Concomitant]
     Indication: STEROID THERAPY
     Route: 048
  5. METHOTREXATE [Concomitant]
     Indication: RHEUMATOID ARTHRITIS
     Route: 048

REACTIONS (6)
  - BRONCHITIS [None]
  - CONDITION AGGRAVATED [None]
  - FOOT FRACTURE [None]
  - PNEUMONIA [None]
  - RHEUMATOID ARTHRITIS [None]
  - SCAR [None]
